FAERS Safety Report 9024378 (Version 1)
Quarter: 2013Q1

REPORT INFORMATION
  Report Type: Spontaneous
  Country: GB (occurrence: GB)
  Receive Date: 20130121
  Receipt Date: 20130121
  Transmission Date: 20140127
  Serious: Yes (Hospitalization)
  Sender: FDA-Public Use
  Company Number: GB-JNJFOC-20130106701

PATIENT
  Age: 17 Month
  Sex: Female

DRUGS (2)
  1. ACETAMINOPHEN [Suspect]
     Indication: PYREXIA
     Dosage: AT ABOUT 1500 HOURS
     Route: 065
     Dates: start: 20121211
  2. EFFERALGAN [Suspect]
     Indication: PYREXIA
     Route: 065
     Dates: start: 20121211

REACTIONS (3)
  - Convulsion [Recovered/Resolved]
  - Choking [Recovered/Resolved]
  - Pyrexia [Recovered/Resolved]
